FAERS Safety Report 8023399-6 (Version None)
Quarter: 2012Q1

REPORT INFORMATION
  Report Type: 
  Country: None (occurrence: None)
  Receive Date: 20120104
  Receipt Date: 20111228
  Transmission Date: 20120608
  Serious: No
  Sender: FDA-Public Use
  Company Number: US-B.I. PHARMACEUTICALS,INC./RIDGEFIELD-2011-BP-08595BP

PATIENT
  Sex: Female

DRUGS (4)
  1. TOPROL-XL [Concomitant]
     Indication: HYPERTENSION
     Dosage: 300 MG
     Route: 048
  2. FELODIPINE [Concomitant]
     Dosage: 10 MG
     Route: 048
  3. FELODIPINE [Concomitant]
     Indication: HYPERTENSION
  4. PRADAXA [Suspect]
     Indication: ATRIAL FIBRILLATION
     Dosage: 300 MG
     Route: 048
     Dates: start: 20110228

REACTIONS (4)
  - VAGINAL HAEMORRHAGE [None]
  - SCIATICA [None]
  - HAEMORRHAGE [None]
  - CONTUSION [None]
